FAERS Safety Report 5102452-0 (Version None)
Quarter: 2006Q3

REPORT INFORMATION
  Report Type: 
  Country: None (occurrence: None)
  Receive Date: 20060907
  Receipt Date: 20060825
  Transmission Date: 20061208
  Serious: Yes (Disabling)
  Sender: FDA-Public Use
  Company Number: 2006104749

PATIENT
  Sex: Male

DRUGS (1)
  1. DIFLUCAN [Suspect]
     Indication: ONYCHOMYCOSIS
     Dosage: 150 MG (150 MG, ONCE/WEEK), ORAL
     Route: 048

REACTIONS (2)
  - MALAISE [None]
  - PYREXIA [None]
